FAERS Safety Report 23550634 (Version 5)
Quarter: 2024Q2

REPORT INFORMATION
  Report Type: Spontaneous
  Country: US (occurrence: US)
  Receive Date: 20240221
  Receipt Date: 20240410
  Transmission Date: 20240716
  Serious: Yes (Other)
  Sender: FDA-Public Use
  Company Number: US-BAUSCH-BL-2024-002443

PATIENT
  Age: 51 Year
  Sex: Female

DRUGS (4)
  1. ALDARA [Suspect]
     Active Substance: IMIQUIMOD
     Indication: Sarcoidosis
     Dosage: FINGER TIP DOSE
     Route: 061
  2. ALDARA [Suspect]
     Active Substance: IMIQUIMOD
     Dosage: FINGER TIP DOSE
     Route: 061
  3. HYDROCORTISONE [Suspect]
     Active Substance: HYDROCORTISONE
     Indication: Rash
     Route: 061
  4. HYDROXYCHLOROQUINE [Concomitant]
     Active Substance: HYDROXYCHLOROQUINE
     Indication: Cutaneous sarcoidosis
     Route: 048

REACTIONS (6)
  - Skin papilloma [Recovered/Resolved]
  - Cutaneous sarcoidosis [Recovered/Resolved]
  - Skin infection [Recovered/Resolved]
  - Papilloma viral infection [Recovered/Resolved]
  - Therapy non-responder [Unknown]
  - Application site irritation [Recovered/Resolved]
